FAERS Safety Report 12765948 (Version 1)
Quarter: 2016Q3

REPORT INFORMATION
  Report Type: Spontaneous
  Country: US (occurrence: US)
  Receive Date: 20160920
  Receipt Date: 20160920
  Transmission Date: 20161109
  Serious: Yes (Other)
  Sender: FDA-Public Use
  Company Number: None

PATIENT
  Age: 4 Month
  Sex: Female
  Weight: 67.5 kg

DRUGS (4)
  1. MULTI-VITAMIN [Suspect]
     Active Substance: .ALPHA.-TOCOPHEROL ACETATE, DL-\ASCORBIC ACID\CYANOCOBALAMIN\FLUORIDE ION\FOLIC ACID\NIACIN\PYRIDOXINE\RIBOFLAVIN\THIAMINE\VITAMIN A\VITAMIN D
  2. ALPRAZOLAM SANDOZ [Suspect]
     Active Substance: ALPRAZOLAM
     Indication: ANXIETY
     Route: 048
     Dates: start: 20160831, end: 20160917
  3. EVENING PRIMROSE OLD [Concomitant]
  4. ALPRAZOLAM SANDOZ [Suspect]
     Active Substance: ALPRAZOLAM
     Indication: INSOMNIA
     Route: 048
     Dates: start: 20160831, end: 20160917

REACTIONS (7)
  - Product taste abnormal [None]
  - Drug effect decreased [None]
  - Malaise [None]
  - Poor quality sleep [None]
  - Menstruation irregular [None]
  - Product colour issue [None]
  - Nausea [None]

NARRATIVE: CASE EVENT DATE: 20160901
